FAERS Safety Report 5011783-4 (Version None)
Quarter: 2006Q2

REPORT INFORMATION
  Report Type: 
  Country: None (occurrence: None)
  Receive Date: 20060524
  Receipt Date: 20060524
  Transmission Date: 20061013
  Serious: Yes (Other)
  Sender: FDA-Public Use
  Company Number: None

PATIENT
  Age: 69 Year
  Sex: Female

DRUGS (3)
  1. DEXTROAMPHETAMINE SR 15MG [Suspect]
     Indication: NARCOLEPSY
     Dosage: TWO CAPS TWICE DAILY
     Dates: start: 20060504
  2. THLORIDAZINE [Concomitant]
  3. CLONAZEPAM [Concomitant]

REACTIONS (2)
  - PHARMACEUTICAL PRODUCT COMPLAINT [None]
  - THERAPEUTIC RESPONSE DECREASED [None]
